FAERS Safety Report 13719403 (Version 2)
Quarter: 2017Q3

REPORT INFORMATION
  Report Type: Spontaneous
  Country: CZ (occurrence: CZ)
  Receive Date: 20170705
  Receipt Date: 20170718
  Transmission Date: 20171127
  Serious: Yes (Death, Life-Threatening, Hospitalization, Other)
  Sender: FDA-Public Use
  Company Number: CZ-PFIZER INC-2017286064

PATIENT
  Age: 43 Year
  Sex: Female

DRUGS (29)
  1. MEROPENEM. [Suspect]
     Active Substance: MEROPENEM
     Indication: DIARRHOEA
  2. CYTARABINE. [Concomitant]
     Active Substance: CYTARABINE
     Dosage: UNK, CYCLIC (HIGHDOSE)
     Dates: start: 201307
  3. CYTARABINE. [Concomitant]
     Active Substance: CYTARABINE
     Dosage: UNK, CYCLIC (ONE CYCLE OF LOW DOSE)
     Dates: start: 2015
  4. FLUDARABINE [Concomitant]
     Active Substance: FLUDARABINE PHOSPHATE
     Dosage: 30 MG/M2, CYCLIC (FOR 6 DAYS)
     Dates: start: 2015
  5. VINCRISTINE [Concomitant]
     Active Substance: VINCRISTINE
     Indication: POST TRANSPLANT LYMPHOPROLIFERATIVE DISORDER
     Dosage: UNK (AS THE THIRD LINE OF THERAPY ON DAY ON DAY 101)
  6. DAUNORUBICIN [Concomitant]
     Active Substance: DAUNORUBICIN
     Indication: ACUTE MYELOID LEUKAEMIA
     Dosage: 90 MG/M2, CYCLIC (FOR 3 DAYS)
     Dates: start: 2013
  7. RITUXIMAB. [Concomitant]
     Active Substance: RITUXIMAB
     Indication: POST TRANSPLANT LYMPHOPROLIFERATIVE DISORDER
     Dosage: 375 MG/M2, CYCLIC (ON DAYS 1, 8, 15, 22) AS THE FIRST LINE OF TREATMENT ON DAYS 67 AND 74.)
  8. RITUXIMAB. [Concomitant]
     Active Substance: RITUXIMAB
     Dosage: 375 MG/M2, CYCLIC (FOR 1 DAY)
  9. PREDNISONE. [Concomitant]
     Active Substance: PREDNISONE
     Indication: POST TRANSPLANT LYMPHOPROLIFERATIVE DISORDER
     Dosage: UNK (AS THE THIRD LINE OF THERAPY ON DAY ON DAY 101)
  10. TREOSULFAN [Concomitant]
     Active Substance: TREOSULFAN
     Indication: ACUTE MYELOID LEUKAEMIA
     Dosage: 12 MG/KG, CYCLIC
  11. MEROPENEM. [Suspect]
     Active Substance: MEROPENEM
     Indication: SEPSIS
     Dosage: UNK
  12. LINEZOLID. [Suspect]
     Active Substance: LINEZOLID
     Indication: DIARRHOEA
  13. FLUDARABINE [Concomitant]
     Active Substance: FLUDARABINE PHOSPHATE
     Indication: ACUTE MYELOID LEUKAEMIA
     Dosage: 30 MG/M2, CYCLIC (FOR 5 DAYS)
     Dates: start: 201309
  14. IDARUBICIN [Concomitant]
     Active Substance: IDARUBICIN
     Indication: ACUTE MYELOID LEUKAEMIA
     Dosage: 12 MG/M2, CYCLIC (FOR 3 DAYS)
     Dates: start: 201411
  15. AMIKACIN [Suspect]
     Active Substance: AMIKACIN
     Indication: DIARRHOEA
  16. CYTARABINE. [Concomitant]
     Active Substance: CYTARABINE
     Indication: ACUTE MYELOID LEUKAEMIA
     Dosage: 100 MG/M2, CYCLIC  (FOR 7 DAYS)
     Dates: start: 2013
  17. TACROLIMUS. [Concomitant]
     Active Substance: TACROLIMUS
     Indication: IMMUNOSUPPRESSION
     Dosage: UNK
     Dates: start: 201309
  18. LINEZOLID. [Suspect]
     Active Substance: LINEZOLID
     Indication: SEPSIS
     Dosage: UNK
  19. THYMOGLOBULIN [Concomitant]
     Active Substance: LAPINE T-LYMPHOCYTE IMMUNE GLOBULIN
     Indication: ACUTE MYELOID LEUKAEMIA
     Dosage: 3 MG/KG, CYCLIC (1 DAY)
     Dates: start: 201309
  20. MYCOPHENOLATE MOFETIL. [Concomitant]
     Active Substance: MYCOPHENOLATE MOFETIL
     Indication: IMMUNOSUPPRESSION
     Dosage: UNK
     Dates: start: 201309
  21. CYCLOPHOSPHAMIDE. [Concomitant]
     Active Substance: CYCLOPHOSPHAMIDE
     Indication: POST TRANSPLANT LYMPHOPROLIFERATIVE DISORDER
     Dosage: 600 MG/M2, CYCLIC
  22. CYCLOPHOSPHAMIDE. [Concomitant]
     Active Substance: CYCLOPHOSPHAMIDE
     Dosage: UNK, CYCLIC (AS THE THIRD LINE OF THERAPY ON DAY ON DAY 101)
  23. CYTARABINE. [Concomitant]
     Active Substance: CYTARABINE
     Dosage: UNK, CYCLIC (2 G/M2 FOR 5 DAYS)
     Dates: start: 2014
  24. BUSULFAN. [Concomitant]
     Active Substance: BUSULFAN
     Indication: ACUTE MYELOID LEUKAEMIA
     Dosage: 3.2 MG/KG, CYCLIC (FOR 4 DAYS)
     Dates: start: 201309
  25. THYMOGLOBULIN [Concomitant]
     Active Substance: LAPINE T-LYMPHOCYTE IMMUNE GLOBULIN
     Dosage: 3 MG/KG, CYCLIC (2 DAYS)
     Dates: start: 2015
  26. AMIKACIN [Suspect]
     Active Substance: AMIKACIN
     Indication: SEPSIS
     Dosage: UNK
  27. FLUDARABINE [Concomitant]
     Active Substance: FLUDARABINE PHOSPHATE
     Dosage: 30 MG/M2, CYCLIC (FOR 5 DAYS)
     Dates: start: 201411
  28. METHYLPREDNISOLONE. [Concomitant]
     Active Substance: METHYLPREDNISOLONE
     Indication: POST TRANSPLANT LYMPHOPROLIFERATIVE DISORDER
     Dosage: 2 MG/KG, UNK (FOR 5 DAYS)
  29. DOXORUBICIN [Concomitant]
     Active Substance: DOXORUBICIN
     Indication: POST TRANSPLANT LYMPHOPROLIFERATIVE DISORDER
     Dosage: UNK (AS THE THIRD LINE OF THERAPY ON DAY ON DAY 101)

REACTIONS (1)
  - Drug ineffective [Fatal]
